FAERS Safety Report 5132709-9 (Version None)
Quarter: 2006Q4

REPORT INFORMATION
  Report Type: 
  Country: None (occurrence: None)
  Receive Date: 20061023
  Receipt Date: 20061017
  Transmission Date: 20070319
  Serious: Yes (Death, Hospitalization)
  Sender: FDA-Public Use
  Company Number: US-GLAXOSMITHKLINE-A0624124A

PATIENT
  Age: 44 Year
  Sex: Female
  Weight: 77.3 kg

DRUGS (16)
  1. ADVAIR HFA [Suspect]
     Indication: DRUG USE FOR UNKNOWN INDICATION
     Dosage: 1PUFF TWICE PER DAY
     Route: 055
     Dates: start: 20041012, end: 20060106
  2. AMITRIPTYLINE HCL [Concomitant]
  3. METHADONE [Concomitant]
  4. DURAGESIC [Concomitant]
  5. BEXTRA [Concomitant]
     Dates: end: 20041101
  6. EFFEXOR [Concomitant]
     Dates: end: 20041101
  7. NEURONTIN [Concomitant]
     Dates: end: 20041101
  8. PRAVACHOL [Concomitant]
  9. HUMIBID [Concomitant]
  10. ESTRADIOL INJ [Concomitant]
  11. FOLATE [Concomitant]
  12. PREDNISONE TAB [Concomitant]
  13. COMBIVENT [Concomitant]
  14. NICOTINE [Concomitant]
  15. AMBIEN [Concomitant]
     Dates: end: 20041101
  16. ZOCOR [Concomitant]

REACTIONS (22)
  - APNOEA [None]
  - ARTERIOSCLEROSIS [None]
  - ASTHMA [None]
  - BETA HAEMOLYTIC STREPTOCOCCAL INFECTION [None]
  - BRONCHITIS [None]
  - BRONCHOSPASM [None]
  - CARDIAC ARREST [None]
  - CARDIO-RESPIRATORY ARREST [None]
  - CHEST DISCOMFORT [None]
  - CHEST PAIN [None]
  - CHRONIC OBSTRUCTIVE PULMONARY DISEASE [None]
  - COUGH [None]
  - DYSPNOEA [None]
  - EMPHYSEMA [None]
  - HEPATIC STEATOSIS [None]
  - HYPOXIA [None]
  - LETHARGY [None]
  - LOSS OF CONSCIOUSNESS [None]
  - MITRAL VALVE PROLAPSE [None]
  - OBSTRUCTIVE AIRWAYS DISORDER [None]
  - RESPIRATORY FAILURE [None]
  - VENTRICULAR FIBRILLATION [None]
